FAERS Safety Report 16677697 (Version 8)
Quarter: 2020Q1

REPORT INFORMATION
  Report Type: Spontaneous
  Country: DE (occurrence: DE)
  Receive Date: 20190807
  Receipt Date: 20200325
  Transmission Date: 20200409
  Serious: Yes (Death, Life-Threatening, Hospitalization, Other)
  Sender: FDA-Public Use
  Company Number: DE-BRISTOL-MYERS SQUIBB COMPANY-BMS-2018-024191

PATIENT
  Age: 30 Year
  Sex: Male

DRUGS (5)
  1. HYDROXYUREA. [Suspect]
     Active Substance: HYDROXYUREA
     Indication: CHRONIC MYELOID LEUKAEMIA
     Route: 065
  2. PONATINIB [Suspect]
     Active Substance: PONATINIB
     Indication: CHRONIC MYELOID LEUKAEMIA
     Route: 065
  3. HYDROXYUREA. [Suspect]
     Active Substance: HYDROXYUREA
     Indication: BLAST CRISIS IN MYELOGENOUS LEUKAEMIA
     Dosage: UNK
     Route: 065
  4. DASATINIB. [Suspect]
     Active Substance: DASATINIB
     Indication: CHRONIC MYELOID LEUKAEMIA
     Dosage: 100 MILLIGRAM, DAILY
     Route: 065
  5. PONATINIB [Suspect]
     Active Substance: PONATINIB
     Indication: BLAST CRISIS IN MYELOGENOUS LEUKAEMIA
     Dosage: 45 MILLIGRAM, QD
     Route: 065

REACTIONS (3)
  - Tumour lysis syndrome [Fatal]
  - Multiple organ dysfunction syndrome [Fatal]
  - Thrombocytopenia [Unknown]

NARRATIVE: CASE EVENT DATE: 201801
